FAERS Safety Report 23276614 (Version 1)
Quarter: 2023Q4

REPORT INFORMATION
  Report Type: Spontaneous
  Country: US (occurrence: None)
  Receive Date: 20231207
  Receipt Date: 20231207
  Transmission Date: 20240110
  Serious: No
  Sender: FDA-Public Use
  Company Number: None

PATIENT
  Age: 77 Year
  Sex: Male
  Weight: 105.23 kg

DRUGS (3)
  1. RINVOQ [Suspect]
     Active Substance: UPADACITINIB
     Indication: Rheumatoid arthritis
     Dosage: FREQUENCY : DAILY;?
     Route: 048
     Dates: start: 202312
  2. RINVOQ [Suspect]
     Active Substance: UPADACITINIB
     Indication: Arthralgia
  3. RINVOQ [Suspect]
     Active Substance: UPADACITINIB
     Indication: Arthralgia

REACTIONS (3)
  - Therapy interrupted [None]
  - Post procedural complication [None]
  - Sepsis [None]
